FAERS Safety Report 17244297 (Version 3)
Quarter: 2020Q2

REPORT INFORMATION
  Report Type: Spontaneous
  Country: US (occurrence: US)
  Receive Date: 20200107
  Receipt Date: 20200424
  Transmission Date: 20200713
  Serious: Yes (Other)
  Sender: FDA-Public Use
  Company Number: US-GILEAD-2019-0444758

PATIENT
  Age: 59 Year
  Sex: Male

DRUGS (33)
  1. DESCOVY [Concomitant]
     Active Substance: EMTRICITABINE\TENOFOVIR ALAFENAMIDE FUMARATE
  2. DIAZEPAM. [Concomitant]
     Active Substance: DIAZEPAM
  3. LITHIUM. [Concomitant]
     Active Substance: LITHIUM
  4. SEROQUEL XR [Concomitant]
     Active Substance: QUETIAPINE FUMARATE
  5. NAMENDA [Concomitant]
     Active Substance: MEMANTINE HYDROCHLORIDE
  6. ATRIPLA [Suspect]
     Active Substance: EFAVIRENZ\EMTRICITABINE\TENOFOVIR DISOPROXIL FUMARATE
     Indication: PRODUCT USED FOR UNKNOWN INDICATION
     Dosage: UNK
     Route: 048
     Dates: start: 200604, end: 201701
  7. LEVOTHYROXINE. [Concomitant]
     Active Substance: LEVOTHYROXINE
  8. CIALIS [Concomitant]
     Active Substance: TADALAFIL
  9. LIOTHYRONINUM [Concomitant]
  10. TRAMADOL. [Concomitant]
     Active Substance: TRAMADOL
  11. METHYLPHENIDATE. [Concomitant]
     Active Substance: METHYLPHENIDATE
  12. TRUVADA [Suspect]
     Active Substance: EMTRICITABINE\TENOFOVIR DISOPROXIL FUMARATE
     Indication: HIV INFECTION
     Dosage: UNK
     Route: 048
     Dates: start: 200604, end: 201405
  13. HYDROCODONE BITARTRATE AND ACETAMINOPHEN [Concomitant]
     Active Substance: ACETAMINOPHEN\HYDROCODONE BITARTRATE
  14. ZOLPIDEM [Concomitant]
     Active Substance: ZOLPIDEM TARTRATE
  15. FUROXONE [Concomitant]
     Active Substance: FURAZOLIDONE
  16. TRUVADA [Suspect]
     Active Substance: EMTRICITABINE\TENOFOVIR DISOPROXIL FUMARATE
     Dosage: UNK
     Route: 065
     Dates: start: 2006, end: 2017
  17. TESTOSTERONE. [Concomitant]
     Active Substance: TESTOSTERONE
  18. KALETRA [Concomitant]
     Active Substance: LOPINAVIR\RITONAVIR
  19. AZITHROMYCIN ANHYDROUS. [Concomitant]
     Active Substance: AZITHROMYCIN ANHYDROUS
  20. SUBOXONE [Concomitant]
     Active Substance: BUPRENORPHINE HYDROCHLORIDE\NALOXONE HYDROCHLORIDE
  21. CYMBALTA [Concomitant]
     Active Substance: DULOXETINE HYDROCHLORIDE
  22. NYAMYC [Concomitant]
     Active Substance: NYSTATIN
  23. METHOCARBAMOL. [Concomitant]
     Active Substance: METHOCARBAMOL
  24. IBUPROFEN. [Concomitant]
     Active Substance: IBUPROFEN
  25. SULFAMETHOXAZOLE;TRIMIPRAMINE [Concomitant]
  26. BUPROPION HCL [Concomitant]
     Active Substance: BUPROPION HYDROCHLORIDE
  27. LOPRAMIDE [Concomitant]
  28. MAGNESIUM OXIDE. [Concomitant]
     Active Substance: MAGNESIUM OXIDE
  29. GABAPENTIN. [Concomitant]
     Active Substance: GABAPENTIN
  30. SYMTUZA [Concomitant]
     Active Substance: COBICISTAT\DARUNAVIR\EMTRICITABINE\TENOFOVIR ALAFENAMIDE
  31. ALPRAZOLAM. [Concomitant]
     Active Substance: ALPRAZOLAM
  32. ANASTROZOLE. [Concomitant]
     Active Substance: ANASTROZOLE
  33. PRAZOSIN. [Concomitant]
     Active Substance: PRAZOSIN

REACTIONS (11)
  - Fracture [Not Recovered/Not Resolved]
  - Bone density decreased [Unknown]
  - Renal failure [Unknown]
  - Osteopenia [Recovered/Resolved]
  - Emotional distress [Unknown]
  - Pain [Unknown]
  - Tooth loss [Unknown]
  - Anhedonia [Unknown]
  - Anxiety [Unknown]
  - Bone density abnormal [Unknown]
  - Economic problem [Unknown]

NARRATIVE: CASE EVENT DATE: 201301
